FAERS Safety Report 9523169 (Version 1)
Quarter: 2013Q1

REPORT INFORMATION
  Report Type: Spontaneous
  Country: US (occurrence: None)
  Receive Date: 20130305
  Receipt Date: 20130305
  Transmission Date: 20140127
  Serious: Yes (Other)
  Sender: FDA-Public Use
  Company Number: 163-21880-12070467

PATIENT
  Age: 77 Year
  Sex: Male
  Weight: 81.19 kg

DRUGS (9)
  1. REVLIMID (LENALIDOMIDE) (CAPSULES) [Suspect]
     Indication: PLASMA CELL MYELOMA
     Dosage: 25 MG, 21 IN 21 D, PO
     Route: 048
     Dates: start: 20101006
  2. VELCADE [Concomitant]
  3. DEXAMETHASONE (DEXAMETHASONE) (UNKNOWN) [Concomitant]
  4. PALONOSETRON (PALONOSETRON) (UNKNOWN) [Concomitant]
  5. ASPIRIN (ACETYLSALICYLIC ACID) (UNKNOWN) (ACETYLSALICYLIC ACID) [Concomitant]
  6. CALCIUM (CALCIUM) (UNKNOWN) [Concomitant]
  7. IRON [Concomitant]
  8. K-DUR (POTASSIUM CHLORIDE) (UNKNOWN) [Concomitant]
  9. BIAXIN (CLARITHROMYCIN) (UNKNOWN) [Concomitant]

REACTIONS (3)
  - Fatigue [None]
  - Pruritus [None]
  - Diarrhoea [None]
